FAERS Safety Report 9886280 (Version 7)
Quarter: 2018Q2

REPORT INFORMATION
  Report Type: Report from Study
  Country: CA (occurrence: CA)
  Receive Date: 20140210
  Receipt Date: 20180625
  Transmission Date: 20180711
  Serious: Yes (Hospitalization, Other)
  Sender: FDA-Public Use
  Company Number: PHHY2013CA063717

PATIENT
  Age: 53 Year
  Sex: Male

DRUGS (6)
  1. GLEEVEC [Suspect]
     Active Substance: IMATINIB MESYLATE
     Indication: CHRONIC MYELOID LEUKAEMIA
     Dosage: 400 MG, QD
     Route: 048
     Dates: start: 20051001
  2. IMODIUM [Concomitant]
     Active Substance: LOPERAMIDE HYDROCHLORIDE
     Indication: PRODUCT USED FOR UNKNOWN INDICATION
     Route: 065
  3. ATIVAN [Concomitant]
     Active Substance: LORAZEPAM
     Indication: PRODUCT USED FOR UNKNOWN INDICATION
     Dosage: UNK, PRN
     Route: 065
  4. XARELTO [Concomitant]
     Active Substance: RIVAROXABAN
     Indication: PRODUCT USED FOR UNKNOWN INDICATION
     Route: 065
  5. GLEEVEC [Suspect]
     Active Substance: IMATINIB MESYLATE
     Dosage: 600 MG, QD
     Route: 048
  6. GLEEVEC [Suspect]
     Active Substance: IMATINIB MESYLATE
     Dosage: 400 MG, QD
     Route: 048

REACTIONS (17)
  - Cardiac failure congestive [Unknown]
  - Diabetes mellitus [Unknown]
  - Palpitations [Unknown]
  - Atrial fibrillation [Recovering/Resolving]
  - Polymyalgia rheumatica [Unknown]
  - Infection [Unknown]
  - Therapeutic response decreased [Unknown]
  - Joint injury [Unknown]
  - Arteritis [Unknown]
  - Sepsis [Unknown]
  - Musculoskeletal stiffness [Unknown]
  - Renal failure [Unknown]
  - Arthritis [Unknown]
  - Insomnia [Unknown]
  - Pain [Unknown]
  - Gastrooesophageal reflux disease [Unknown]
  - Diarrhoea [Unknown]

NARRATIVE: CASE EVENT DATE: 20131218
